FAERS Safety Report 4476986-6 (Version None)
Quarter: 2004Q4

REPORT INFORMATION
  Report Type: 
  Country: None (occurrence: None)
  Receive Date: 20041018
  Receipt Date: 20040922
  Transmission Date: 20050328
  Serious: Yes (Death)
  Sender: FDA-Public Use
  Company Number: 200412971JP

PATIENT
  Age: 67 Year
  Sex: Female

DRUGS (1)
  1. TAXOTERE [Suspect]
     Indication: UTERINE CANCER
     Route: 041
     Dates: start: 20040820, end: 20040820

REACTIONS (1)
  - PULMONARY INFARCTION [None]
